FAERS Safety Report 6662558-1 (Version None)
Quarter: 2010Q1

REPORT INFORMATION
  Report Type: 
  Country: None (occurrence: None)
  Receive Date: 20100329
  Receipt Date: 20100319
  Transmission Date: 20100710
  Serious: Yes (Life-Threatening)
  Sender: FDA-Public Use
  Company Number: 2010SP017526

PATIENT
  Age: 52 Year
  Sex: Male

DRUGS (9)
  1. MIRTAZAPINE [Suspect]
     Indication: DEPRESSION
     Dosage: PO, 45 MG;QD;PO, 30 MG;QD;PO
     Route: 048
     Dates: start: 20090916, end: 20091215
  2. MIRTAZAPINE [Suspect]
     Indication: DEPRESSION
     Dosage: PO, 45 MG;QD;PO, 30 MG;QD;PO
     Route: 048
     Dates: start: 20091216, end: 20091224
  3. MIRTAZAPINE [Suspect]
     Indication: DEPRESSION
     Dosage: PO, 45 MG;QD;PO, 30 MG;QD;PO
     Route: 048
     Dates: start: 20091225, end: 20100215
  4. SEROQUEL [Suspect]
     Indication: DRUG USE FOR UNKNOWN INDICATION
     Dosage: PO, 25 MG;QD;PO
     Route: 048
     Dates: start: 20100129, end: 20100204
  5. SEROQUEL [Suspect]
     Indication: DRUG USE FOR UNKNOWN INDICATION
     Dosage: PO, 25 MG;QD;PO
     Route: 048
     Dates: start: 20100205, end: 20100215
  6. ALPRAZOLAM [Concomitant]
  7. BROTIZOLAM [Concomitant]
  8. FLUNITRAZEPAM [Concomitant]
  9. MAGNESIUM OXIDE [Concomitant]

REACTIONS (9)
  - ANXIETY [None]
  - DECREASED APPETITE [None]
  - DIALYSIS [None]
  - DRUG EFFECT DECREASED [None]
  - DYSGRAPHIA [None]
  - DYSPHONIA [None]
  - DYSPNOEA [None]
  - INSOMNIA [None]
  - RENAL FAILURE [None]
